FAERS Safety Report 17136827 (Version 4)
Quarter: 2020Q1

REPORT INFORMATION
  Report Type: Report from Study
  Country: IN (occurrence: IN)
  Receive Date: 20191210
  Receipt Date: 20200327
  Transmission Date: 20200409
  Serious: Yes (Hospitalization)
  Sender: FDA-Public Use
  Company Number: PHHY2016IN119198

PATIENT
  Age: 30 Year
  Sex: Male

DRUGS (25)
  1. SCAPHO [Suspect]
     Active Substance: SECUKINUMAB
     Dosage: UNK
     Route: 065
     Dates: start: 20180607
  2. SCAPHO [Suspect]
     Active Substance: SECUKINUMAB
     Dosage: 150 MG, UNK
     Route: 058
     Dates: start: 20170414
  3. SCAPHO [Suspect]
     Active Substance: SECUKINUMAB
     Dosage: 150 MG, QMO
     Route: 058
     Dates: start: 20180312
  4. FOLVITE [Concomitant]
     Active Substance: FOLIC ACID
     Indication: PRODUCT USED FOR UNKNOWN INDICATION
     Dosage: UNK
     Route: 065
  5. SCAPHO [Suspect]
     Active Substance: SECUKINUMAB
     Dosage: 150 MG, UNK
     Route: 058
     Dates: start: 20170816
  6. SCAPHO [Suspect]
     Active Substance: SECUKINUMAB
     Dosage: 300 MG, QMO
     Route: 058
     Dates: start: 20191102
  7. SCAPHO [Suspect]
     Active Substance: SECUKINUMAB
     Dosage: 150 MG, UNK
     Route: 058
     Dates: start: 20170215
  8. SCAPHO [Suspect]
     Active Substance: SECUKINUMAB
     Dosage: UNK
     Route: 065
     Dates: start: 20180802
  9. SCAPHO [Suspect]
     Active Substance: SECUKINUMAB
     Dosage: 150 MG, QMO
     Route: 058
     Dates: start: 20190924
  10. SCAPHO [Suspect]
     Active Substance: SECUKINUMAB
     Dosage: 150 MG, QMO
     Route: 058
     Dates: start: 20190720
  11. METHOTREXATE. [Concomitant]
     Active Substance: METHOTREXATE
     Indication: PRODUCT USED FOR UNKNOWN INDICATION
     Dosage: 25 MG, QW
     Route: 030
  12. SCAPHO [Suspect]
     Active Substance: SECUKINUMAB
     Dosage: 150 MG, UNK
     Route: 058
     Dates: start: 20160906
  13. SCAPHO [Suspect]
     Active Substance: SECUKINUMAB
     Dosage: UNK
     Route: 065
     Dates: start: 20180205
  14. SCAPHO [Suspect]
     Active Substance: SECUKINUMAB
     Dosage: 150 MG, QMO
     Route: 058
     Dates: start: 20190105
  15. SCAPHO [Suspect]
     Active Substance: SECUKINUMAB
     Dosage: 150 MG, QMO
     Route: 058
     Dates: start: 20200121
  16. SCAPHO [Suspect]
     Active Substance: SECUKINUMAB
     Dosage: 150 MG, UNK
     Route: 058
     Dates: start: 20170110
  17. SCAPHO [Suspect]
     Active Substance: SECUKINUMAB
     Dosage: 150 MG, QMO
     Route: 058
     Dates: start: 20190306
  18. SCAPHO [Suspect]
     Active Substance: SECUKINUMAB
     Dosage: UNK
     Route: 065
     Dates: start: 20190502
  19. SCAPHO [Suspect]
     Active Substance: SECUKINUMAB
     Dosage: 150 MG, QMO
     Route: 065
     Dates: start: 20191202
  20. SCAPHO [Suspect]
     Active Substance: SECUKINUMAB
     Dosage: 150 MG, QMO
     Route: 058
     Dates: start: 20191205
  21. FOLITRAX [Concomitant]
     Active Substance: METHOTREXATE SODIUM
     Indication: PRODUCT USED FOR UNKNOWN INDICATION
     Dosage: UNK UNK, QW
     Route: 065
  22. SCAPHO [Suspect]
     Active Substance: SECUKINUMAB
     Indication: PSORIATIC ARTHROPATHY
     Dosage: 150 MG, UNK
     Route: 058
     Dates: start: 20160823
  23. SCAPHO [Suspect]
     Active Substance: SECUKINUMAB
     Indication: PSORIASIS
     Dosage: 150 MG, UNK
     Route: 058
     Dates: start: 20160830
  24. SCAPHO [Suspect]
     Active Substance: SECUKINUMAB
     Dosage: 150 MG, UNK
     Route: 058
     Dates: start: 20161212
  25. SCAPHO [Suspect]
     Active Substance: SECUKINUMAB
     Dosage: 150 MG, QMO
     Route: 058
     Dates: start: 20190922

REACTIONS (24)
  - Gait disturbance [Not Recovered/Not Resolved]
  - Oropharyngeal pain [Recovering/Resolving]
  - Inappropriate schedule of product administration [Unknown]
  - Malaise [Unknown]
  - Psoriasis [Not Recovered/Not Resolved]
  - Pruritus [Not Recovered/Not Resolved]
  - Arthralgia [Not Recovered/Not Resolved]
  - Stress [Not Recovered/Not Resolved]
  - Dysstasia [Not Recovered/Not Resolved]
  - Skin irritation [Unknown]
  - Pain of skin [Not Recovered/Not Resolved]
  - Pain [Not Recovered/Not Resolved]
  - Asthenia [Not Recovered/Not Resolved]
  - Nasopharyngitis [Recovered/Resolved]
  - Prescribed underdose [Unknown]
  - Joint effusion [Not Recovered/Not Resolved]
  - Pyrexia [Recovered/Resolved]
  - Erythema [Unknown]
  - Musculoskeletal stiffness [Unknown]
  - Arthropathy [Unknown]
  - Immune system disorder [Unknown]
  - Oedema peripheral [Unknown]
  - Skin exfoliation [Not Recovered/Not Resolved]
  - Drug ineffective [Unknown]

NARRATIVE: CASE EVENT DATE: 20160823
